FAERS Safety Report 12579285 (Version 1)
Quarter: 2016Q3

REPORT INFORMATION
  Report Type: Spontaneous
  Country: US (occurrence: US)
  Receive Date: 20160721
  Receipt Date: 20160721
  Transmission Date: 20161109
  Serious: No
  Sender: FDA-Public Use
  Company Number: US-BEH-2016058806

PATIENT
  Sex: Female
  Weight: 77.57 kg

DRUGS (22)
  1. ZOLOFT [Concomitant]
     Active Substance: SERTRALINE HYDROCHLORIDE
  2. MELATONIN [Concomitant]
     Active Substance: MELATONIN
  3. FLAXSEED [Concomitant]
     Active Substance: FLAX SEED
  4. EPIPEN [Concomitant]
     Active Substance: EPINEPHRINE
  5. MARINOL [Concomitant]
     Active Substance: DRONABINOL
  6. CLARITIN [Concomitant]
     Active Substance: LORATADINE
  7. ALBUTEROL. [Concomitant]
     Active Substance: ALBUTEROL
  8. SPIRIVA [Concomitant]
     Active Substance: TIOTROPIUM BROMIDE MONOHYDRATE
  9. CARDIZEM [Concomitant]
     Active Substance: DILTIAZEM HYDROCHLORIDE
  10. XOPENEX [Concomitant]
     Active Substance: LEVALBUTEROL HYDROCHLORIDE
  11. ZEMAIRA [Suspect]
     Active Substance: .ALPHA.1-PROTEINASE INHIBITOR HUMAN
     Indication: ALPHA-1 ANTI-TRYPSIN DEFICIENCY
     Dosage: 60 MG/KG, QW
     Route: 042
  12. SODIUM CHLORIDE. [Concomitant]
     Active Substance: SODIUM CHLORIDE
  13. SINGULAIR [Concomitant]
     Active Substance: MONTELUKAST SODIUM
  14. AZELASTINE [Concomitant]
     Active Substance: AZELASTINE
  15. CALCIUM W/VITAMIN D [Concomitant]
     Active Substance: CALCIUM\VITAMIN D
  16. LIDOCAINE. [Concomitant]
     Active Substance: LIDOCAINE
  17. XANAX [Concomitant]
     Active Substance: ALPRAZOLAM
  18. MAGNESIUM [Concomitant]
     Active Substance: MAGNESIUM
  19. ASPIRIN. [Concomitant]
     Active Substance: ASPIRIN
  20. DIPHENHYDRAMINE. [Concomitant]
     Active Substance: DIPHENHYDRAMINE
  21. FLONASE [Concomitant]
     Active Substance: FLUTICASONE PROPIONATE
  22. OXYGEN. [Concomitant]
     Active Substance: OXYGEN

REACTIONS (3)
  - Product use issue [Unknown]
  - Dyspnoea [Unknown]
  - Chest pain [Unknown]
